FAERS Safety Report 5355022-3 (Version None)
Quarter: 2007Q2

REPORT INFORMATION
  Report Type: 
  Country: None (occurrence: None)
  Receive Date: 20070521
  Receipt Date: 20070405
  Transmission Date: 20071010
  Serious: No
  Sender: FDA-Public Use
  Company Number: WAES 0704USA00998

PATIENT
  Age: 70 Year
  Sex: Male

DRUGS (2)
  1. JANUVIA [Suspect]
     Indication: BLOOD GLUCOSE ABNORMAL
     Dosage: PO
     Route: 048
     Dates: start: 20070301, end: 20070329
  2. [THERAPY UNSPECIFIED] [Concomitant]

REACTIONS (1)
  - ORAL PAIN [None]
